FAERS Safety Report 7650846-1 (Version None)
Quarter: 2011Q3

REPORT INFORMATION
  Report Type: 
  Country: None (occurrence: None)
  Receive Date: 20110802
  Receipt Date: 20110726
  Transmission Date: 20111222
  Serious: Yes (Hospitalization)
  Sender: FDA-Public Use
  Company Number: US-BAXTER-2011BH024386

PATIENT
  Age: 64 Year
  Sex: Female

DRUGS (1)
  1. DIANEAL [Suspect]
     Indication: PERITONEAL DIALYSIS
     Route: 033

REACTIONS (6)
  - MALNUTRITION [None]
  - URINARY TRACT INFECTION [None]
  - SEPSIS [None]
  - HYPOTENSION [None]
  - ESCHERICHIA INFECTION [None]
  - FAILURE TO THRIVE [None]
